FAERS Safety Report 5422549-5 (Version None)
Quarter: 2007Q3

REPORT INFORMATION
  Report Type: 
  Country: None (occurrence: None)
  Receive Date: 20070822
  Receipt Date: 20070820
  Transmission Date: 20080115
  Serious: Yes (Other)
  Sender: FDA-Public Use
  Company Number: FR-ELI_LILLY_AND_COMPANY-FR200708003946

PATIENT
  Age: 75 Year
  Sex: Female

DRUGS (5)
  1. FORTEO [Suspect]
     Indication: OSTEOPOROSIS
     Dosage: 20 UG, DAILY (1/D)
     Route: 058
     Dates: start: 20070425
  2. PREVISCAN [Concomitant]
     Dosage: UNK, UNK
  3. ALDACTAZINE [Concomitant]
  4. TAHOR [Concomitant]
  5. IMOVANE [Concomitant]

REACTIONS (1)
  - INGUINAL HERNIA [None]
